FAERS Safety Report 4625994-0 (Version None)
Quarter: 2005Q2

REPORT INFORMATION
  Report Type: 
  Country: None (occurrence: None)
  Receive Date: 20050404
  Receipt Date: 20050316
  Transmission Date: 20051028
  Serious: Yes (Hospitalization)
  Sender: FDA-Public Use
  Company Number: BE-ABBOTT-05P-013-0294542-00

PATIENT
  Sex: Female

DRUGS (1)
  1. ZEMPLAR [Suspect]
     Indication: HYPERPARATHYROIDISM SECONDARY
     Dosage: NOT REPORTED
     Route: 050
     Dates: start: 20050228

REACTIONS (3)
  - ENTERITIS INFECTIOUS [None]
  - GASTROENTERITIS VIRAL [None]
  - GASTROINTESTINAL FUNGAL INFECTION [None]
